FAERS Safety Report 12897731 (Version 1)
Quarter: 2016Q4

REPORT INFORMATION
  Report Type: Spontaneous
  Country: CA (occurrence: CA)
  Receive Date: 20161031
  Receipt Date: 20161031
  Transmission Date: 20170207
  Serious: Yes (Death)
  Sender: FDA-Public Use
  Company Number: CA-BAYER-2016-202600

PATIENT
  Age: 70 Year
  Sex: Male

DRUGS (2)
  1. ASPIRIN. [Suspect]
     Active Substance: ASPIRIN
     Indication: PRODUCT USED FOR UNKNOWN INDICATION
     Dosage: 81 MG, QD
     Route: 065
  2. PRADAXA [Suspect]
     Active Substance: DABIGATRAN ETEXILATE MESYLATE
     Indication: PRODUCT USED FOR UNKNOWN INDICATION
     Dosage: 110 MG, BID
     Route: 065

REACTIONS (6)
  - Activated partial thromboplastin time prolonged [Fatal]
  - International normalised ratio increased [Fatal]
  - Death [Fatal]
  - Gastrointestinal haemorrhage [Fatal]
  - Lower gastrointestinal haemorrhage [Fatal]
  - Urinary bladder haemorrhage [Fatal]
